FAERS Safety Report 10246598 (Version 1)
Quarter: 2014Q2

REPORT INFORMATION
  Report Type: Spontaneous
  Country: US (occurrence: None)
  Receive Date: 20140617
  Receipt Date: 20140617
  Transmission Date: 20141212
  Serious: No
  Sender: FDA-Public Use
  Company Number: None

PATIENT
  Age: 59 Year
  Sex: Female
  Weight: 58.97 kg

DRUGS (1)
  1. SOVALDI 400MG MCKESSON [Suspect]
     Indication: HEPATITIS C
     Route: 048
     Dates: start: 20140524, end: 20140515

REACTIONS (4)
  - Dizziness [None]
  - Palpitations [None]
  - Blood pressure systolic increased [None]
  - Panic attack [None]
